FAERS Safety Report 6236330-0 (Version None)
Quarter: 2009Q2

REPORT INFORMATION
  Report Type: 
  Country: None (occurrence: None)
  Receive Date: 20090619
  Receipt Date: 20090615
  Transmission Date: 20091009
  Serious: Yes (Other)
  Sender: FDA-Public Use
  Company Number: FR-ASTRAZENECA-2009CG01246

PATIENT
  Age: 19287 Day
  Sex: Male

DRUGS (9)
  1. XYLOCAINE [Suspect]
     Indication: INDUCTION OF ANAESTHESIA
     Route: 042
     Dates: start: 20080708, end: 20080708
  2. DIPRIVAN [Suspect]
     Indication: INDUCTION OF ANAESTHESIA
     Route: 042
     Dates: start: 20080708, end: 20080708
  3. TRACRIUM [Suspect]
     Indication: INDUCTION OF ANAESTHESIA
     Route: 042
     Dates: start: 20080708, end: 20080708
  4. SUFENTA PRESERVATIVE FREE [Suspect]
     Indication: INDUCTION OF ANAESTHESIA
     Route: 042
     Dates: start: 20080708, end: 20080708
  5. KEFZOL [Suspect]
     Route: 042
     Dates: start: 20080708, end: 20080708
  6. CRESTOR [Concomitant]
     Indication: HYPERCHOLESTEROLAEMIA
     Route: 048
  7. COMBIVIR [Concomitant]
     Indication: ACQUIRED IMMUNODEFICIENCY SYNDROME
  8. TELZIR [Concomitant]
     Indication: ACQUIRED IMMUNODEFICIENCY SYNDROME
  9. NORVIR [Concomitant]
     Indication: ACQUIRED IMMUNODEFICIENCY SYNDROME

REACTIONS (2)
  - BRONCHOSPASM [None]
  - URTICARIA [None]
